FAERS Safety Report 14030899 (Version 1)
Quarter: 2017Q4

REPORT INFORMATION
  Report Type: Spontaneous
  Country: GB (occurrence: GB)
  Receive Date: 20171002
  Receipt Date: 20171002
  Transmission Date: 20180321
  Serious: Yes (Other)
  Sender: FDA-Public Use
  Company Number: GB-ACCORD-059241

PATIENT
  Age: 70 Year
  Sex: Male
  Weight: 72 kg

DRUGS (5)
  1. ACETYLSALICYLIC ACID [Concomitant]
     Active Substance: ASPIRIN
  2. CANDESARTAN. [Concomitant]
     Active Substance: CANDESARTAN
  3. ROPINIROLE/ROPINIROLE HYDROCHLORIDE [Suspect]
     Active Substance: ROPINIROLE HYDROCHLORIDE
     Indication: PARKINSON^S DISEASE
     Route: 048
     Dates: start: 200607, end: 201707
  4. LAMOTRIGINE. [Concomitant]
     Active Substance: LAMOTRIGINE
  5. CO-BENELDOPA [Concomitant]
     Active Substance: BENSERAZIDE HYDROCHLORIDE\LEVODOPA

REACTIONS (7)
  - Depression [Unknown]
  - Somnolence [Recovered/Resolved]
  - Multiple injuries [None]
  - Intentional overdose [Unknown]
  - Sexually inappropriate behaviour [Recovered/Resolved with Sequelae]
  - Fall [Unknown]
  - Hypersexuality [Unknown]

NARRATIVE: CASE EVENT DATE: 2013
